FAERS Safety Report 12762595 (Version 1)
Quarter: 2016Q3

REPORT INFORMATION
  Report Type: Spontaneous
  Country: US (occurrence: US)
  Receive Date: 20160915
  Receipt Date: 20160915
  Transmission Date: 20161109
  Serious: No
  Sender: FDA-Public Use
  Company Number: None

PATIENT
  Sex: Female

DRUGS (1)
  1. INLYTA [Suspect]
     Active Substance: AXITINIB
     Dosage: INLYTA - 2 MG QAM AND 1 MG QPM 2 WEEKS ON AND 2 MG BID - FREQUENCY - 2MG QAM AND 1 MG QPM 2 WEEKS ON AND 2 MG BID
     Route: 048
     Dates: start: 20160317

REACTIONS (4)
  - Diarrhoea [None]
  - Skin disorder [None]
  - Aphonia [None]
  - Fatigue [None]
